FAERS Safety Report 14055756 (Version 3)
Quarter: 2018Q1

REPORT INFORMATION
  Report Type: Report from Study
  Country: None (occurrence: US)
  Receive Date: 20171006
  Receipt Date: 20180314
  Transmission Date: 20180508
  Serious: Yes (Other)
  Sender: FDA-Public Use
  Company Number: US-ABBVIE-17K-163-2117372-00

PATIENT
  Sex: Female

DRUGS (1)
  1. HUMIRA [Suspect]
     Active Substance: ADALIMUMAB
     Indication: RHEUMATOID ARTHRITIS
     Route: 058

REACTIONS (9)
  - Intervertebral disc protrusion [Not Recovered/Not Resolved]
  - Hip arthroplasty [Unknown]
  - Joint range of motion decreased [Unknown]
  - Knee arthroplasty [Unknown]
  - Arthritis [Not Recovered/Not Resolved]
  - Joint surgery [Unknown]
  - Asthenia [Not Recovered/Not Resolved]
  - Eye disorder [Unknown]
  - Neuropathy peripheral [Not Recovered/Not Resolved]
